FAERS Safety Report 11463102 (Version 1)
Quarter: 2015Q3

REPORT INFORMATION
  Report Type: Spontaneous
  Country: US (occurrence: US)
  Receive Date: 20150905
  Receipt Date: 20150905
  Transmission Date: 20151125
  Serious: No
  Sender: FDA-Public Use
  Company Number: US-B.I. PHARMACEUTICALS,INC./RIDGEFIELD-2015-BI-46623BP

PATIENT
  Sex: Female

DRUGS (1)
  1. COMBIVENT [Suspect]
     Active Substance: ALBUTEROL SULFATE\IPRATROPIUM BROMIDE
     Indication: PRODUCT USED FOR UNKNOWN INDICATION
     Dosage: STRENGTH: 20MCG/100MCG;
     Route: 055

REACTIONS (9)
  - Dyspnoea [Unknown]
  - Tremor [Unknown]
  - Arthritis [Unknown]
  - Cardiac discomfort [Unknown]
  - Food allergy [Unknown]
  - Feeling abnormal [Unknown]
  - Malaise [Unknown]
  - Visual impairment [Unknown]
  - Dyslexia [Unknown]
